FAERS Safety Report 7895214-2 (Version None)
Quarter: 2011Q4

REPORT INFORMATION
  Report Type: 
  Country: None (occurrence: None)
  Receive Date: 20111102
  Receipt Date: 20111018
  Transmission Date: 20120403
  Serious: Yes (Hospitalization, Other)
  Sender: FDA-Public Use
  Company Number: 2011P1009516

PATIENT
  Age: 19 Month
  Sex: Female
  Weight: 13.6079 kg

DRUGS (1)
  1. CETIRIZINE HCL [Suspect]
     Indication: NASOPHARYNGITIS
     Dosage: 10 MG;X1; PO
     Route: 048
     Dates: start: 20111013, end: 20111013

REACTIONS (1)
  - FEBRILE CONVULSION [None]
